FAERS Safety Report 6397092-X (Version None)
Quarter: 2009Q4

REPORT INFORMATION
  Report Type: 
  Country: None (occurrence: None)
  Receive Date: 20091012
  Receipt Date: 20091002
  Transmission Date: 20100525
  Serious: Yes (Hospitalization, Other)
  Sender: FDA-Public Use
  Company Number: US-ABBOTT-09P-163-0600859-00

PATIENT
  Sex: Female
  Weight: 86.714 kg

DRUGS (16)
  1. HUMIRA [Suspect]
     Indication: CROHN'S DISEASE
     Dates: start: 20061215
  2. HUMIRA [Suspect]
     Indication: RHEUMATOID ARTHRITIS
  3. HUMIRA [Suspect]
     Indication: ANKYLOSING SPONDYLITIS
  4. DEMEROL [Suspect]
     Indication: PAIN
     Dates: start: 20080501, end: 20080501
  5. TRILITE [Suspect]
     Indication: BOWEL PREPARATION
     Dates: start: 20090901, end: 20090901
  6. NEURONTIN [Concomitant]
     Indication: MULTIPLE SCLEROSIS
  7. FENTANYL [Concomitant]
     Indication: PAIN
     Route: 061
  8. OPANA [Concomitant]
     Indication: BREAKTHROUGH PAIN
  9. IMURAN [Concomitant]
     Indication: ANKYLOSING SPONDYLITIS
  10. IMURAN [Concomitant]
     Indication: RHEUMATOID ARTHRITIS
  11. IMURAN [Concomitant]
     Indication: CROHN'S DISEASE
  12. VIMPAT [Concomitant]
     Indication: MULTIPLE SCLEROSIS
  13. DETROL [Concomitant]
     Indication: URINARY INCONTINENCE
  14. TOPAMAX [Concomitant]
     Indication: MIGRAINE
  15. PRILOSEC [Concomitant]
     Indication: GASTROOESOPHAGEAL REFLUX DISEASE
  16. ANTIBIOTICS [Concomitant]
     Indication: SINUSITIS
     Dates: start: 20090101, end: 20090101

REACTIONS (13)
  - CROHN'S DISEASE [None]
  - DECREASED APPETITE [None]
  - DYSARTHRIA [None]
  - INFLUENZA [None]
  - OPTIC NEURITIS [None]
  - PSYCHOTIC DISORDER [None]
  - PYREXIA [None]
  - SINUSITIS [None]
  - TREMOR [None]
  - ULCER HAEMORRHAGE [None]
  - VISION BLURRED [None]
  - VOMITING [None]
  - WEIGHT DECREASED [None]
